FAERS Safety Report 8060023-0 (Version None)
Quarter: 2012Q1

REPORT INFORMATION
  Report Type: 
  Country: None (occurrence: None)
  Receive Date: 20120120
  Receipt Date: 20120119
  Transmission Date: 20120608
  Serious: Yes (Life-Threatening, Disabling)
  Sender: FDA-Public Use
  Company Number: GXKR2012DE000623

PATIENT

DRUGS (2)
  1. DOXYCYCLINE [Suspect]
     Indication: BORRELIA INFECTION
     Dosage: 200 MG, UNK
     Route: 048
  2. ARCOXIA [Suspect]
     Indication: ARTHRALGIA
     Dosage: 120 MG, UNK
     Route: 048

REACTIONS (2)
  - ANGINA PECTORIS [None]
  - CARDIAC FAILURE [None]
